FAERS Safety Report 6005004-3 (Version None)
Quarter: 2008Q4

REPORT INFORMATION
  Report Type: 
  Country: None (occurrence: None)
  Receive Date: 20081216
  Receipt Date: 20080909
  Transmission Date: 20090506
  Serious: No
  Sender: FDA-Public Use
  Company Number: US-BAUSCH-2008BL003905

PATIENT
  Age: 74 Year
  Sex: Female
  Weight: 52 kg

DRUGS (2)
  1. ALAWAY [Suspect]
     Indication: EYE PRURITUS
     Route: 047
     Dates: start: 20080815, end: 20080821
  2. ALAWAY [Suspect]
     Route: 047
     Dates: start: 20080825, end: 20080828

REACTIONS (2)
  - EYE IRRITATION [None]
  - HEADACHE [None]
